FAERS Safety Report 6663171-2 (Version None)
Quarter: 2010Q2

REPORT INFORMATION
  Report Type: 
  Country: None (occurrence: None)
  Receive Date: 20100401
  Receipt Date: 20100322
  Transmission Date: 20101027
  Serious: Yes (Other)
  Sender: FDA-Public Use
  Company Number: US-ABBOTT-10P-163-0634530-00

PATIENT
  Sex: Male

DRUGS (5)
  1. HUMIRA [Suspect]
     Indication: PSORIASIS
     Dates: start: 20070301
  2. XANAX [Concomitant]
     Indication: DEPRESSION
  3. WELLBUTRIN [Concomitant]
     Indication: DEPRESSION
  4. MAXZIDE [Concomitant]
     Indication: HYPERTENSION
  5. CLOBEX [Concomitant]
     Indication: PSORIASIS

REACTIONS (5)
  - CONDITION AGGRAVATED [None]
  - DIFFUSE LARGE B-CELL LYMPHOMA [None]
  - LYMPHOMA [None]
  - NODULE [None]
  - PSORIASIS [None]
